FAERS Safety Report 7994219-0 (Version None)
Quarter: 2011Q4

REPORT INFORMATION
  Report Type: 
  Country: None (occurrence: None)
  Receive Date: 20111220
  Receipt Date: 20111208
  Transmission Date: 20120403
  Serious: Yes (Hospitalization)
  Sender: FDA-Public Use
  Company Number: US-ENDO PHARMACEUTICALS INC.-ENDC20110054

PATIENT
  Sex: Female
  Weight: 104.42 kg

DRUGS (2)
  1. OXYCODONE AND ACETAMINOPHEN [Suspect]
     Dosage: 120/3900 MG
     Route: 048
     Dates: start: 20110101
  2. OXYCODONE AND ACETAMINOPHEN [Suspect]
     Indication: PAIN
     Dosage: 120/3900 MG
     Route: 048
     Dates: end: 20110101

REACTIONS (2)
  - VERTIGO [None]
  - CARDIAC DISORDER [None]
